FAERS Safety Report 19758616 (Version 1)
Quarter: 2021Q3

REPORT INFORMATION
  Report Type: Spontaneous
  Country: CA (occurrence: CA)
  Receive Date: 20210827
  Receipt Date: 20210827
  Transmission Date: 20211014
  Serious: Yes (Other)
  Sender: FDA-Public Use
  Company Number: CA-COVIS PHARMA GMBH-2021COV22116

PATIENT
  Age: 62 Year
  Sex: Female

DRUGS (8)
  1. ATACAND HYDROSENSE [Concomitant]
  2. SYNTHROID [Concomitant]
     Active Substance: LEVOTHYROXINE SODIUM
  3. OMNARIS [Suspect]
     Active Substance: CICLESONIDE
     Route: 055
     Dates: start: 20180220, end: 20180220
  4. PILLS FOR MIGRAINE [Concomitant]
     Indication: MIGRAINE
  5. TECTA [Concomitant]
     Active Substance: PANTOPRAZOLE MAGNESIUM
  6. OMNARIS [Suspect]
     Active Substance: CICLESONIDE
     Indication: TINNITUS
     Route: 055
     Dates: start: 20180220, end: 20180220
  7. NASONEX [Concomitant]
     Active Substance: MOMETASONE FUROATE
  8. EZETIMIBE. [Concomitant]
     Active Substance: EZETIMIBE

REACTIONS (3)
  - Headache [Unknown]
  - Device issue [Unknown]
  - Epistaxis [Recovered/Resolved]
